FAERS Safety Report 8119788-1 (Version None)
Quarter: 2011Q4

REPORT INFORMATION
  Report Type: 
  Country: None (occurrence: None)
  Receive Date: 20111227
  Receipt Date: 20111004
  Transmission Date: 20120403
  Serious: No
  Sender: FDA-Public Use
  Company Number: PHEH2011US05962

PATIENT
  Age: 55 Year
  Sex: Female

DRUGS (6)
  1. HYDROCHLOROTHIAZIDE W/TRIAMTERENE (HYDROCHLOROTHIAZIDE , TRIAMTERENE) [Concomitant]
  2. GILENYA [Suspect]
     Dosage: 0.5 MG, QD, ORAL
     Route: 048
  3. NEXIUM [Concomitant]
  4. RAMIPRIL [Concomitant]
  5. METOPROLOL TARTRATE [Concomitant]
  6. ACETAMINOPHEN [Concomitant]

REACTIONS (1)
  - FATIGUE [None]
